FAERS Safety Report 10404406 (Version 2)
Quarter: 2015Q3

REPORT INFORMATION
  Report Type: Spontaneous
  Country: US (occurrence: None)
  Receive Date: 20140214
  Receipt Date: 20150629
  Transmission Date: 20151125
  Serious: No
  Sender: FDA-Public Use
  Company Number: A-NJ2013-93171

PATIENT
  Age: 23 Year
  Sex: Female

DRUGS (1)
  1. OPSUMIT [Suspect]
     Active Substance: MACITENTAN
     Indication: PULMONARY ARTERIAL HYPERTENSION
     Route: 048
     Dates: start: 20131127

REACTIONS (3)
  - Dysmenorrhoea [None]
  - Menorrhagia [None]
  - Condition aggravated [None]

NARRATIVE: CASE EVENT DATE: 20131227
